FAERS Safety Report 4485937-X (Version None)
Quarter: 2004Q4

REPORT INFORMATION
  Report Type: 
  Country: None (occurrence: None)
  Receive Date: 20041021
  Receipt Date: 20040714
  Transmission Date: 20050328
  Serious: Yes (Other)
  Sender: FDA-Public Use
  Company Number: 30020656-NA01-2

PATIENT

DRUGS (1)
  1. 2B1324 - 0.9% SODIUM CHLORIDE INJECTION, USP [Suspect]
     Indication: HAEMODIALYSIS
     Dosage: IV
     Dates: start: 20040701

REACTIONS (8)
  - CHEST DISCOMFORT [None]
  - DYSPNOEA [None]
  - ERYTHEMA [None]
  - EYE SWELLING [None]
  - NASAL CONGESTION [None]
  - OEDEMA MOUTH [None]
  - PRURITUS GENERALISED [None]
  - SNEEZING [None]
